FAERS Safety Report 14524991 (Version 1)
Quarter: 2018Q1

REPORT INFORMATION
  Report Type: Spontaneous
  Country: US (occurrence: US)
  Receive Date: 20180213
  Receipt Date: 20180213
  Transmission Date: 20180509
  Serious: No
  Sender: FDA-Public Use
  Company Number: US-BAYER-2018-028549

PATIENT

DRUGS (2)
  1. MIRALAX [Suspect]
     Active Substance: POLYETHYLENE GLYCOL 3350
     Indication: GASTROINTESTINAL DISORDER
     Dosage: 0.5 DF, QD
     Route: 048
     Dates: start: 201710
  2. IBUPROFEN GENERICON PHARMA [Concomitant]
     Dosage: UNK

REACTIONS (1)
  - Faeces soft [Recovering/Resolving]

NARRATIVE: CASE EVENT DATE: 201711
